FAERS Safety Report 20114074 (Version 2)
Quarter: 2021Q4

REPORT INFORMATION
  Report Type: Report from Study
  Country: FR (occurrence: FR)
  Receive Date: 20211125
  Receipt Date: 20211215
  Transmission Date: 20220304
  Serious: Yes (Hospitalization, Other)
  Sender: FDA-Public Use
  Company Number: FR-TAKEDA-2021TUS074112

PATIENT
  Age: 20 Year
  Sex: Male

DRUGS (2)
  1. IDURSULFASE [Suspect]
     Active Substance: IDURSULFASE
     Indication: Mucopolysaccharidosis II
     Dosage: 0.38 MILLIGRAM/KILOGRAM, 1/WEEK
     Route: 042
     Dates: start: 20090629
  2. IDURSULFASE [Suspect]
     Active Substance: IDURSULFASE
     Dosage: 0.38 MILLIGRAM/KILOGRAM
     Route: 042
     Dates: start: 20110520, end: 20120430

REACTIONS (1)
  - Pneumonia aspiration [Recovered/Resolved]

NARRATIVE: CASE EVENT DATE: 20141114
